FAERS Safety Report 8028449 (Version 3)
Quarter: 2013Q4

REPORT INFORMATION
  Report Type: Report from Study
  Country: GB (occurrence: GB)
  Receive Date: 20110711
  Receipt Date: 20131018
  Transmission Date: 20140711
  Serious: Yes (Death, Hospitalization)
  Sender: FDA-Public Use
  Company Number: GB-ASTRAZENECA-2011SE39584

PATIENT
  Age: 26361 Day
  Sex: Female
  Weight: 60 kg

DRUGS (6)
  1. ZD6474 [Suspect]
     Indication: TRANSITIONAL CELL CARCINOMA
     Route: 048
     Dates: start: 20110208, end: 20110525
  2. CARBOPLATIN [Suspect]
     Indication: TRANSITIONAL CELL CARCINOMA
     Route: 042
     Dates: start: 20110208, end: 20110511
  3. GEMCITABINE [Suspect]
     Indication: TRANSITIONAL CELL CARCINOMA
     Dosage: 1200 MG ON DAY 1 AND DAY 8 OF EVERY 21 DAYS CYCLE
     Route: 042
     Dates: start: 20110208, end: 20110518
  4. SIMVASTATIN [Concomitant]
     Route: 048
     Dates: start: 2006
  5. AMLODIPINE [Concomitant]
     Route: 048
     Dates: start: 20110315
  6. RAMIPRIL [Concomitant]
     Route: 048
     Dates: start: 2006

REACTIONS (1)
  - Bronchopulmonary aspergillosis [Fatal]
